FAERS Safety Report 17223850 (Version 1)
Quarter: 2020Q1

REPORT INFORMATION
  Report Type: Spontaneous
  Country: PL (occurrence: PL)
  Receive Date: 20200102
  Receipt Date: 20200102
  Transmission Date: 20200409
  Serious: Yes (Life-Threatening)
  Sender: FDA-Public Use
  Company Number: PL-TEVA-2019-PL-1159941

PATIENT
  Age: 65 Year
  Sex: Male

DRUGS (5)
  1. RANIGAST [Concomitant]
     Dates: start: 20190228
  2. PACLITAXEL. [Suspect]
     Active Substance: PACLITAXEL
     Indication: MALIGNANT RESPIRATORY TRACT NEOPLASM
     Dosage: 60 MILLIGRAM, SECOND DOSE OF DRUG
     Route: 042
     Dates: start: 20190228, end: 20190228
  3. DEXAMETHASON [Concomitant]
     Active Substance: DEXAMETHASONE
     Dates: start: 20190228
  4. ONDANSETRON [Concomitant]
     Active Substance: ONDANSETRON
     Dates: start: 20190228
  5. PHENAZOLINUM [Concomitant]
     Dates: start: 20190228

REACTIONS (2)
  - Cardiac arrest [Unknown]
  - Dyspnoea [Unknown]

NARRATIVE: CASE EVENT DATE: 20190228
